FAERS Safety Report 13678384 (Version 1)
Quarter: 2017Q2

REPORT INFORMATION
  Report Type: Spontaneous
  Country: US (occurrence: US)
  Receive Date: 20170621
  Receipt Date: 20170621
  Transmission Date: 20170830
  Serious: Yes (Other)
  Sender: FDA-Public Use
  Company Number: None

PATIENT
  Age: 71 Year
  Sex: Male
  Weight: 90.45 kg

DRUGS (9)
  1. BICALUTIMIDE [Concomitant]
  2. LISINOPRIL 10MG TABLETS [Suspect]
     Active Substance: LISINOPRIL
     Indication: HYPERTENSION
     Dosage: ?          QUANTITY:1 TABLET(S);?
     Route: 048
     Dates: start: 20170611, end: 20170621
  3. ASPERIN [Concomitant]
  4. METROPORAL [Concomitant]
  5. MULTIVITAMIN (SILVER) [Concomitant]
  6. PLAVIX [Concomitant]
     Active Substance: CLOPIDOGREL BISULFATE
  7. LEVOTHYROXIN [Concomitant]
     Active Substance: LEVOTHYROXINE
  8. LIPITOR [Concomitant]
     Active Substance: ATORVASTATIN CALCIUM
  9. BIOTIN [Concomitant]
     Active Substance: BIOTIN

REACTIONS (2)
  - Product size issue [None]
  - Blood pressure increased [None]

NARRATIVE: CASE EVENT DATE: 20170611
